FAERS Safety Report 14015681 (Version 2)
Quarter: 2017Q4

REPORT INFORMATION
  Report Type: Report from Study
  Country: US (occurrence: US)
  Receive Date: 20170927
  Receipt Date: 20171018
  Transmission Date: 20180321
  Serious: Yes (Hospitalization)
  Sender: FDA-Public Use
  Company Number: US-GILEAD-2017-0292514

PATIENT
  Age: 52 Year
  Sex: Female

DRUGS (2)
  1. COUMADIN [Suspect]
     Active Substance: WARFARIN SODIUM
     Indication: PRODUCT USED FOR UNKNOWN INDICATION
     Dosage: UNK
     Route: 065
  2. AMBRISENTAN [Suspect]
     Active Substance: AMBRISENTAN
     Indication: PULMONARY HYPERTENSION
     Dosage: 10 MG, QD
     Route: 065
     Dates: start: 20150708

REACTIONS (6)
  - Malaise [Unknown]
  - Cyanosis [Unknown]
  - Catheterisation cardiac [Unknown]
  - Spontaneous haemorrhage [Unknown]
  - Mental disorder [Not Recovered/Not Resolved]
  - Oedema [Unknown]
